FAERS Safety Report 25455287 (Version 1)
Quarter: 2025Q2

REPORT INFORMATION
  Report Type: Spontaneous
  Country: FR (occurrence: FR)
  Receive Date: 20250619
  Receipt Date: 20250619
  Transmission Date: 20250716
  Serious: Yes (Other)
  Sender: ALEXION PHARMACEUTICALS
  Company Number: None

PATIENT
  Age: 57 Year

DRUGS (2)
  1. CRESTOR [Suspect]
     Active Substance: ROSUVASTATIN CALCIUM
     Indication: Hypertension
  2. AMLODIPINE\INDAPAMIDE [Suspect]
     Active Substance: AMLODIPINE\INDAPAMIDE
     Indication: Hypertension
     Dosage: 1 DOSAGE FORM, 1/DAY

REACTIONS (4)
  - Organic erectile dysfunction [Not Recovered/Not Resolved]
  - Affective disorder [Not Recovered/Not Resolved]
  - Alopecia [Not Recovered/Not Resolved]
  - Back pain [Not Recovered/Not Resolved]
